FAERS Safety Report 10380658 (Version 1)
Quarter: 2014Q3

REPORT INFORMATION
  Report Type: Report from Study
  Country: BR (occurrence: BR)
  Receive Date: 20140813
  Receipt Date: 20140813
  Transmission Date: 20150326
  Serious: Yes (Other)
  Sender: FDA-Public Use
  Company Number: PHHY2014BR099304

PATIENT
  Age: 63 Year
  Sex: Male

DRUGS (7)
  1. METFORMIN [Concomitant]
     Active Substance: METFORMIN HYDROCHLORIDE
     Dosage: 850 MG, BID
  2. BUDESONIDE, FORMOTEROL FUMARATE [Suspect]
     Active Substance: BUDESONIDE\FORMOTEROL FUMARATE DIHYDRATE
     Dosage: UNK UKN, PRN
     Route: 055
  3. SIMVASTATIN. [Suspect]
     Active Substance: SIMVASTATIN
     Dosage: 40 MG, DAILY
  4. HYDROCHLOROTHIAZIDE. [Concomitant]
     Active Substance: HYDROCHLOROTHIAZIDE
     Dosage: 12.5 MG, DAILY
  5. CANDESARTAN CILEXETIL. [Suspect]
     Active Substance: CANDESARTAN CILEXETIL
     Dosage: 8 MG, DAILY
  6. ACETYLSALICYLIC ACID [Concomitant]
     Active Substance: ASPIRIN
     Dosage: 81 MG, DAILY
  7. BISOPROLOL [Concomitant]
     Active Substance: BISOPROLOL
     Dosage: 1.25 UKN, DAILY

REACTIONS (17)
  - Hepatic pain [Recovered/Resolved]
  - Blood pressure systolic increased [Recovered/Resolved]
  - Left ventricular dysfunction [Unknown]
  - Obstructive airways disorder [Unknown]
  - Oedema peripheral [Recovered/Resolved]
  - Left ventricular failure [Unknown]
  - Tricuspid valve incompetence [Recovering/Resolving]
  - Palpitations [Unknown]
  - Chronic obstructive pulmonary disease [Unknown]
  - Haematocrit increased [Unknown]
  - Peripheral venous disease [Recovered/Resolved]
  - Hepatomegaly [Unknown]
  - Diastolic dysfunction [Unknown]
  - Dyspnoea [Recovering/Resolving]
  - Right ventricular failure [Unknown]
  - Mitral valve incompetence [Recovering/Resolving]
  - Bronchospasm [Recovering/Resolving]
